FAERS Safety Report 5878095-8 (Version None)
Quarter: 2008Q3

REPORT INFORMATION
  Report Type: 
  Country: None (occurrence: None)
  Receive Date: 20080911
  Receipt Date: 20080905
  Transmission Date: 20090109
  Serious: Yes (Hospitalization, Other)
  Sender: FDA-Public Use
  Company Number: US-MERCK-0809USA00848

PATIENT
  Age: 78 Year
  Sex: Male

DRUGS (14)
  1. DECADRON SRC [Suspect]
     Indication: MULTIPLE MYELOMA
     Route: 048
     Dates: start: 20080306, end: 20080501
  2. THALOMID [Suspect]
     Indication: MULTIPLE MYELOMA
     Route: 048
     Dates: start: 20080507, end: 20080702
  3. COUMADIN [Concomitant]
     Route: 065
  4. PLAVIX [Concomitant]
     Route: 065
  5. FLOMAX (MORNIFLUMATE) [Concomitant]
     Route: 065
  6. MEGACE [Concomitant]
     Route: 065
  7. MAALOX [Concomitant]
     Route: 065
  8. NORVASC [Concomitant]
     Route: 065
  9. LASIX [Concomitant]
     Route: 065
  10. ATIVAN [Concomitant]
     Route: 065
  11. ALDACTONE [Concomitant]
     Route: 065
  12. COSOPT [Concomitant]
     Route: 065
  13. TRAVATAN [Concomitant]
     Route: 065
  14. PERCOCET [Concomitant]
     Route: 065

REACTIONS (3)
  - CONSTIPATION [None]
  - DEEP VEIN THROMBOSIS [None]
  - FATIGUE [None]
